FAERS Safety Report 6923199-1 (Version None)
Quarter: 2010Q3

REPORT INFORMATION
  Report Type: 
  Country: None (occurrence: None)
  Receive Date: 20100813
  Receipt Date: 20100805
  Transmission Date: 20110219
  Serious: Yes (Hospitalization)
  Sender: FDA-Public Use
  Company Number: US-ROCHE-713560

PATIENT
  Sex: Female
  Weight: 94.9 kg

DRUGS (7)
  1. TOCILIZUMAB [Suspect]
     Indication: RHEUMATOID ARTHRITIS
     Dosage: DOSE FORM:IV, LAST DOSE PRIOR TO SAE:12 MAY 2010
     Route: 042
     Dates: start: 20091008
  2. ACETYLSALICYLIC ACID SRT [Concomitant]
     Dosage: FREQUENCY : DAILY
  3. METHOTREXATE [Concomitant]
     Dosage: DOSE:0.8 CC, FREQUENCY:WEEKLY
     Dates: start: 20080815
  4. PREDNISONE [Concomitant]
     Dates: start: 20080815
  5. FOLATE/THIAMINE [Concomitant]
     Dosage: DRUG REPORTED AS FOLATE
     Dates: start: 20080815
  6. PLENDIL [Concomitant]
     Dates: start: 20080911
  7. ULTRAM [Concomitant]
     Dates: start: 20090814

REACTIONS (1)
  - CHEST PAIN [None]
